FAERS Safety Report 7148143-6 (Version None)
Quarter: 2010Q4

REPORT INFORMATION
  Report Type: 
  Country: None (occurrence: None)
  Receive Date: 20101209
  Receipt Date: 20101129
  Transmission Date: 20110411
  Serious: Yes (Hospitalization)
  Sender: FDA-Public Use
  Company Number: CA-JNJFOC-20101200946

PATIENT
  Sex: Male
  Weight: 104 kg

DRUGS (3)
  1. REMICADE [Suspect]
     Indication: CROHN'S DISEASE
     Route: 042
  2. DRUGS FOR FUNCTIONAL GASTROINTEST. DISORDERS [Concomitant]
  3. CORTICOSTEROID NOS [Concomitant]

REACTIONS (1)
  - NON-HODGKIN'S LYMPHOMA [None]
